FAERS Safety Report 13005293 (Version 1)
Quarter: 2016Q4

REPORT INFORMATION
  Report Type: Spontaneous
  Country: US (occurrence: US)
  Receive Date: 20161207
  Receipt Date: 20161207
  Transmission Date: 20170207
  Serious: No
  Sender: FDA-Public Use
  Company Number: US-TEVA-715924ACC

PATIENT
  Sex: Female

DRUGS (2)
  1. MAXIMUM STRENGTH MUCUS-DM [Suspect]
     Active Substance: DEXTROMETHORPHAN\GUAIFENESIN
     Indication: COUGH
     Dosage: GUAIFENESIN/DEXTROMETHORPHAN HYDROBROMIDE:1200/60 MG
     Route: 048
     Dates: start: 201609, end: 2016
  2. MAXIMUM STRENGTH MUCUS-DM [Suspect]
     Active Substance: DEXTROMETHORPHAN\GUAIFENESIN
     Indication: PRODUCTIVE COUGH

REACTIONS (1)
  - Drug ineffective [Unknown]

NARRATIVE: CASE EVENT DATE: 201609
